FAERS Safety Report 7341999-3 (Version None)
Quarter: 2011Q1

REPORT INFORMATION
  Report Type: 
  Country: None (occurrence: None)
  Receive Date: 20110309
  Receipt Date: 20110210
  Transmission Date: 20110831
  Serious: No
  Sender: FDA-Public Use
  Company Number: US-B.I. PHARMACEUTICALS,INC./RIDGEFIELD-2011-BP-00576BP

PATIENT
  Sex: Female

DRUGS (17)
  1. DULCOLAX [Concomitant]
  2. PRADAXA [Suspect]
     Indication: CARDIAC MURMUR
     Dosage: 300 MG
     Route: 048
     Dates: start: 20101210
  3. VERAPAMIL [Concomitant]
     Indication: CARDIAC DISORDER
     Dosage: 180 MG
     Route: 048
  4. SALINE NASAL SPRAY [Concomitant]
  5. MIRALAX [Concomitant]
  6. TUCKS [Concomitant]
  7. A-D OINTMENT [Concomitant]
  8. PRADAXA [Suspect]
     Indication: THROMBOEMBOLECTOMY
  9. FEMARA [Concomitant]
     Indication: BREAST CANCER
     Dosage: 2.5 MG
     Route: 048
  10. DULCOLAX [Concomitant]
  11. PEPCID AC [Concomitant]
  12. LORAZEPAM [Concomitant]
  13. PRILOSEC [Concomitant]
     Indication: GASTROOESOPHAGEAL REFLUX DISEASE
     Dosage: 220.6 MG
     Route: 048
  14. PLAVIX [Concomitant]
     Indication: CARDIAC DISORDER
     Dosage: 75 MG
     Route: 048
  15. TYLENOL [Concomitant]
  16. SUSTANG ULTRA [Concomitant]
  17. VITAMIN D [Concomitant]

REACTIONS (3)
  - HAEMORRHOIDS [None]
  - RECTAL HAEMORRHAGE [None]
  - CONSTIPATION [None]
